FAERS Safety Report 10932777 (Version 1)
Quarter: 2015Q1

REPORT INFORMATION
  Report Type: Spontaneous
  Country: US (occurrence: None)
  Receive Date: 20150318
  Receipt Date: 20150318
  Transmission Date: 20150721
  Serious: No
  Sender: FDA-Public Use
  Company Number: 1210513-2015-00090

PATIENT
  Age: 34 Year
  Sex: Male
  Weight: 90.72 kg

DRUGS (1)
  1. WALMART EQUATE ORASOL (BENZOCAINE) (SHEFFIELD PHARMACEUTICALS) [Suspect]
     Active Substance: BENZOCAINE
     Indication: ANALGESIC THERAPY
     Dosage: ORAL 047
     Route: 048
     Dates: start: 20110228, end: 20110303

REACTIONS (2)
  - Hypoaesthesia oral [None]
  - Application site hypoaesthesia [None]

NARRATIVE: CASE EVENT DATE: 20110304
